FAERS Safety Report 6397440-0 (Version None)
Quarter: 2009Q4

REPORT INFORMATION
  Report Type: 
  Country: None (occurrence: None)
  Receive Date: 20091012
  Receipt Date: 20091002
  Transmission Date: 20100525
  Serious: Yes (Other)
  Sender: FDA-Public Use
  Company Number: PHHY2009CA37651

PATIENT
  Sex: Female

DRUGS (2)
  1. SANDOSTATIN LAR [Suspect]
     Indication: CARCINOID SYNDROME
     Dosage: 20 MG, EVERY 4 WEEKS
     Route: 030
     Dates: start: 20090812, end: 20090812
  2. SANDOSTATIN LAR [Suspect]
     Dosage: UNK
     Route: 030
     Dates: start: 20080428, end: 20080428

REACTIONS (9)
  - ABDOMINAL PAIN [None]
  - DEPRESSION [None]
  - DIARRHOEA [None]
  - DRUG INTOLERANCE [None]
  - EYE PAIN [None]
  - FATIGUE [None]
  - HOT FLUSH [None]
  - HYPERHIDROSIS [None]
  - NAUSEA [None]
